FAERS Safety Report 7827337-8 (Version None)
Quarter: 2011Q4

REPORT INFORMATION
  Report Type: 
  Country: None (occurrence: None)
  Receive Date: 20111020
  Receipt Date: 20111019
  Transmission Date: 20120403
  Serious: Yes (Other)
  Sender: FDA-Public Use
  Company Number: BR-PFIZER INC-2011242131

PATIENT
  Sex: Female

DRUGS (7)
  1. AMLODIPINE [Concomitant]
     Indication: HYPERTENSION
     Dosage: ONE TABLET, OCNE DAILY
     Dates: start: 20110801
  2. SERTRALINE HYDROCHLORIDE [Concomitant]
     Dosage: ONE TABLET DAILY
     Dates: start: 20110601
  3. PRISTIQ [Suspect]
     Dosage: 50 MG, 1X/DAY
     Route: 048
     Dates: start: 20111004, end: 20111001
  4. VYTORIN [Concomitant]
     Indication: BLOOD CHOLESTEROL INCREASED
     Dosage: UNK
  5. SYNTHROID [Concomitant]
     Indication: THYROIDECTOMY
     Dosage: UNK
     Dates: start: 20100101
  6. LEXOTAN [Suspect]
     Dosage: 3MG DAILY
  7. DIOVAN [Concomitant]
     Indication: HYPERTENSION
     Dosage: UNK

REACTIONS (2)
  - HEAD DISCOMFORT [None]
  - PNEUMONIA [None]
